FAERS Safety Report 9066342 (Version 1)
Quarter: 2013Q1

REPORT INFORMATION
  Report Type: Report from Study
  Country: US (occurrence: US)
  Receive Date: 20130131
  Receipt Date: 20130131
  Transmission Date: 20140127
  Serious: No
  Sender: FDA-Public Use
  Company Number: US-ABBOTT-12P-163-1007638-00

PATIENT
  Sex: Male
  Weight: 104.42 kg

DRUGS (6)
  1. HUMIRA [Suspect]
     Indication: CROHN^S DISEASE
     Route: 058
     Dates: start: 201209
  2. ASACOL [Concomitant]
     Indication: CROHN^S DISEASE
  3. PHENERGAN [Concomitant]
     Indication: NAUSEA
  4. IRON PILLS [Concomitant]
     Indication: PRODUCT USED FOR UNKNOWN INDICATION
  5. BETA BLOCKER [Concomitant]
     Indication: HYPERTENSION
  6. SHOT [Concomitant]
     Indication: BLOOD TESTOSTERONE DECREASED

REACTIONS (6)
  - Lethargy [Not Recovered/Not Resolved]
  - Myalgia [Recovered/Resolved]
  - Injection site pain [Recovered/Resolved]
  - Injection site mass [Recovered/Resolved]
  - Proctalgia [Recovered/Resolved]
  - Diarrhoea [Not Recovered/Not Resolved]
